FAERS Safety Report 5016060-3 (Version None)
Quarter: 2006Q2

REPORT INFORMATION
  Report Type: 
  Country: None (occurrence: None)
  Receive Date: 20060531
  Receipt Date: 20060531
  Transmission Date: 20061013
  Serious: Yes (Death)
  Sender: FDA-Public Use
  Company Number: None

PATIENT
  Age: 43 Year
  Sex: Female
  Weight: 51.2565 kg

DRUGS (11)
  1. CYCLOPHOSPHAMIDE [Suspect]
     Indication: WALDENSTROM'S MACROGLOBULINAEMIA
     Dosage: 900 MG ONCE IV BOLUS
     Route: 040
     Dates: start: 20060519, end: 20060519
  2. RITUXIMAB [Suspect]
     Dosage: 600 MG /5 MG
     Dates: start: 20060519, end: 20060519
  3. SYNTHROID [Concomitant]
  4. BUMEX [Concomitant]
  5. ENALAPRIL [Concomitant]
  6. METOLAZONE [Suspect]
  7. POTASSIUM [Concomitant]
  8. MAGNESIUM OXIDE [Concomitant]
  9. FAMVIR [Concomitant]
  10. BACTRIM DS [Concomitant]
  11. PENTOSTATIN [Suspect]

REACTIONS (11)
  - ASTHENIA [None]
  - CARDIAC ARREST [None]
  - GENERAL PHYSICAL HEALTH DETERIORATION [None]
  - METABOLIC ACIDOSIS [None]
  - PAIN [None]
  - PULMONARY OEDEMA [None]
  - PYREXIA [None]
  - RESPIRATORY FAILURE [None]
  - SHOCK [None]
  - THERAPY NON-RESPONDER [None]
  - TUMOUR LYSIS SYNDROME [None]
